FAERS Safety Report 20048577 (Version 1)
Quarter: 2021Q4

REPORT INFORMATION
  Report Type: Spontaneous
  Country: RU (occurrence: None)
  Receive Date: 20211109
  Receipt Date: 20211109
  Transmission Date: 20220303
  Serious: Yes (Hospitalization, Other)
  Sender: FDA-Public Use
  Company Number: 2021A795414

PATIENT
  Age: 31 Year
  Sex: Female

DRUGS (3)
  1. ROSUVASTATIN [Suspect]
     Active Substance: ROSUVASTATIN
     Indication: Type IIa hyperlipidaemia
     Dosage: 40.0MG UNKNOWN
     Route: 048
     Dates: start: 2011
  2. EZETIMIBE [Concomitant]
     Active Substance: EZETIMIBE
     Dosage: 10.0MG UNKNOWN
     Route: 065
  3. INCLISIRAN [Concomitant]
     Active Substance: INCLISIRAN
     Dosage: 300 MG ONCE EVERY 6 MONTHS
     Route: 058

REACTIONS (9)
  - Carotid artery stenosis [Unknown]
  - Aortic stenosis [Unknown]
  - Carotid arteriosclerosis [Unknown]
  - Presyncope [Unknown]
  - Dyspnoea [Unknown]
  - Lipoprotein (a) increased [Unknown]
  - Syncope [Unknown]
  - Low density lipoprotein increased [Unknown]
  - Blood cholesterol increased [Unknown]
